FAERS Safety Report 5795472-4 (Version None)
Quarter: 2008Q2

REPORT INFORMATION
  Report Type: 
  Country: None (occurrence: None)
  Receive Date: 20080630
  Receipt Date: 20080619
  Transmission Date: 20081010
  Serious: Yes (Other)
  Sender: FDA-Public Use
  Company Number: US-JNJFOC-20080600417

PATIENT
  Sex: Male
  Weight: 63.05 kg

DRUGS (15)
  1. REMICADE [Suspect]
     Indication: ANKYLOSING SPONDYLITIS
     Route: 042
  2. ACTONEL [Concomitant]
  3. CELEBREX [Concomitant]
  4. CYMBALTA [Concomitant]
     Indication: DEPRESSION
  5. PREVACID [Concomitant]
     Indication: GASTROOESOPHAGEAL REFLUX DISEASE
  6. PROCRIT [Concomitant]
     Indication: PAIN
  7. OXYCONTIN [Concomitant]
     Indication: PAIN
  8. LIPITOR [Concomitant]
  9. LISINOPRIL [Concomitant]
  10. TRICOR [Concomitant]
  11. ZETIA [Concomitant]
  12. ASPIRIN [Concomitant]
  13. NITROGLYCERIN [Concomitant]
  14. PERCOCET [Concomitant]
  15. TEGADERM [Concomitant]

REACTIONS (1)
  - OESOPHAGEAL ADENOCARCINOMA [None]
